FAERS Safety Report 7272226-3 (Version None)
Quarter: 2011Q1

REPORT INFORMATION
  Report Type: 
  Country: None (occurrence: None)
  Receive Date: 20110203
  Receipt Date: 20110124
  Transmission Date: 20110831
  Serious: Yes (Hospitalization)
  Sender: FDA-Public Use
  Company Number: PHHY2011US05575

PATIENT
  Sex: Male
  Weight: 65 kg

DRUGS (1)
  1. EXJADE [Suspect]
     Indication: MYELOPROLIFERATIVE DISORDER
     Dosage: 1000 MG, DAILY
     Route: 048
     Dates: start: 20110121

REACTIONS (2)
  - PLATELET COUNT INCREASED [None]
  - HEART RATE ABNORMAL [None]
